FAERS Safety Report 5191677-4 (Version None)
Quarter: 2006Q4

REPORT INFORMATION
  Report Type: 
  Country: None (occurrence: None)
  Receive Date: 20061219
  Receipt Date: 20061208
  Transmission Date: 20070319
  Serious: Yes (Other)
  Sender: FDA-Public Use
  Company Number: 2006152382

PATIENT
  Age: 44 Year
  Sex: Female
  Weight: 57.6068 kg

DRUGS (8)
  1. LYRICA [Suspect]
     Indication: SLEEP DISORDER
     Dosage: (25 MG, 25 TO 50MG AT BEDTIME)
     Dates: start: 20061001
  2. OXYCONTIN [Concomitant]
  3. PERCOCET [Concomitant]
  4. SYNTHROID [Concomitant]
  5. VALIUM [Concomitant]
  6. SOMA [Concomitant]
  7. FIORINAL [Concomitant]
  8. LIDODERM PATCH (LIDOCAINE HYDROCHLORIDE) [Concomitant]

REACTIONS (1)
  - POLYARTHRITIS [None]
